FAERS Safety Report 9636667 (Version 2)
Quarter: 2013Q4

REPORT INFORMATION
  Report Type: Report from Study
  Country: DE (occurrence: DE)
  Receive Date: 20131021
  Receipt Date: 20131021
  Transmission Date: 20140711
  Serious: Yes (Hospitalization)
  Sender: FDA-Public Use
  Company Number: DE-ROCHE-1256054

PATIENT
  Age: 61 Year
  Sex: Female
  Weight: 56 kg

DRUGS (13)
  1. PERTUZUMAB [Suspect]
     Indication: BREAST CANCER
     Dosage: LAST DOSE PRIOR TO FEBRILE LEUCOPENIA AND FEVER - 08/JUL/2013.
     Route: 042
     Dates: start: 20130415, end: 20130722
  2. PERTUZUMAB [Suspect]
     Dosage: DATE OF LAST DOSE PRIOR TO ERYSIPELAS: 05/AUG/2013
     Route: 042
     Dates: start: 20130805
  3. PERTUZUMAB [Suspect]
     Route: 042
     Dates: start: 20130902
  4. TRASTUZUMAB [Suspect]
     Indication: BREAST CANCER
     Dosage: LAST DOSE PRIOR TO FEBRILE LEUCOPENIA AND FEVER - 08/JUL/2013.
     Route: 042
     Dates: start: 20130415, end: 20130722
  5. TRASTUZUMAB [Suspect]
     Dosage: DATE OF LAST DOSE PRIOR TO ERYSIPELAS: 05/AUG/2013
     Route: 042
     Dates: start: 20130805
  6. TRASTUZUMAB [Suspect]
     Route: 042
     Dates: start: 20130902
  7. NAB-PACLITAXEL [Suspect]
     Indication: BREAST CANCER
     Dosage: LAST DOSE PRIOR TO FEBRILE LEUCOPENIA, FEVER AND ERYSIPELAS: 01/JUL/2013.
     Route: 042
     Dates: start: 20130415
  8. EPIRUBICIN [Suspect]
     Indication: BREAST CANCER
     Dosage: LAST DOSE PRIOR TO FEBRILE LEUCOPENIA, FEVER AND ERYSIPELAS: 08/JUL/2013.
     Route: 042
     Dates: start: 20130708, end: 20130722
  9. EPIRUBICIN [Suspect]
     Route: 042
     Dates: end: 20130805
  10. EPIRUBICIN [Suspect]
     Route: 042
     Dates: start: 20130812
  11. CYCLOPHOSPHAMID [Suspect]
     Indication: BREAST CANCER
     Dosage: LAST DOSE PRIOR TO FEBRILE LEUCOPENIA, FEVER AND ERYSIPELAS: 08/JUL/2013.
     Route: 042
     Dates: start: 20130708, end: 20130722
  12. CYCLOPHOSPHAMID [Suspect]
     Route: 042
     Dates: end: 20130805
  13. CYCLOPHOSPHAMID [Suspect]
     Route: 042
     Dates: start: 20130812

REACTIONS (3)
  - Erysipelas [Recovered/Resolved]
  - Febrile neutropenia [Recovered/Resolved]
  - Pyrexia [Recovered/Resolved]
